FAERS Safety Report 9466176 (Version 1)
Quarter: 2013Q3

REPORT INFORMATION
  Report Type: Report from Study
  Country: ES (occurrence: ES)
  Receive Date: 20130820
  Receipt Date: 20130820
  Transmission Date: 20140515
  Serious: Yes (Hospitalization)
  Sender: FDA-Public Use
  Company Number: ES-ABBOTT-13P-144-1132683-00

PATIENT
  Age: 62 Year
  Sex: Male

DRUGS (3)
  1. HUMIRA [Suspect]
     Indication: CROHN^S DISEASE
     Route: 058
     Dates: start: 20090403, end: 20090403
  2. HUMIRA [Suspect]
     Route: 058
     Dates: start: 200904, end: 200904
  3. HUMIRA [Suspect]
     Route: 058
     Dates: start: 20090428, end: 20100113

REACTIONS (1)
  - Small intestinal resection [Not Recovered/Not Resolved]
